FAERS Safety Report 11796964 (Version 12)
Quarter: 2021Q2

REPORT INFORMATION
  Report Type: Spontaneous
  Country: US (occurrence: US)
  Receive Date: 20151203
  Receipt Date: 20210406
  Transmission Date: 20210716
  Serious: Yes (Congenital Anomaly, Other)
  Sender: FDA-Public Use
  Company Number: PHEH2015US025092

PATIENT
  Sex: Male

DRUGS (2)
  1. ZOFRAN [Suspect]
     Active Substance: ONDANSETRON HYDROCHLORIDE
     Indication: FOETAL EXPOSURE DURING PREGNANCY
     Dosage: MOTHER^S DOSE: 4 MG, UNK
     Route: 064
  2. ZOFRAN ODT [Suspect]
     Active Substance: ONDANSETRON HYDROCHLORIDE
     Indication: FOETAL EXPOSURE DURING PREGNANCY
     Route: 064

REACTIONS (55)
  - Pyrexia [Unknown]
  - Vomiting [Unknown]
  - Attention deficit hyperactivity disorder [Unknown]
  - Cellulitis [Unknown]
  - Injury [Unknown]
  - Gastroenteritis [Unknown]
  - Weight gain poor [Unknown]
  - Foetal exposure during pregnancy [Unknown]
  - Bronchiolitis [Unknown]
  - Otitis media [Unknown]
  - Ear pain [Unknown]
  - Upper respiratory tract infection [Unknown]
  - Tonsillitis [Unknown]
  - Oropharyngeal pain [Unknown]
  - Constipation [Unknown]
  - Underweight [Unknown]
  - Middle ear disorder [Unknown]
  - Learning disability [Unknown]
  - Congenital anomaly [Unknown]
  - Failure to thrive [Unknown]
  - Pain [Unknown]
  - Pharyngitis [Unknown]
  - Anxiety [Unknown]
  - Skin laceration [Unknown]
  - Snoring [Unknown]
  - Developmental delay [Unknown]
  - Selective eating disorder [Unknown]
  - Nasopharyngitis [Unknown]
  - Face oedema [Unknown]
  - Infection [Unknown]
  - Velopharyngeal incompetence [Unknown]
  - Speech disorder developmental [Unknown]
  - Eating disorder [Unknown]
  - Tooth hypoplasia [Unknown]
  - Anhedonia [Unknown]
  - Otorrhoea [Unknown]
  - Decreased appetite [Unknown]
  - Diarrhoea [Unknown]
  - Candida infection [Unknown]
  - Oral candidiasis [Unknown]
  - Malocclusion [Unknown]
  - Abscess limb [Unknown]
  - Eustachian tube dysfunction [Unknown]
  - Dermatitis diaper [Unknown]
  - Rhinitis allergic [Unknown]
  - Small for dates baby [Unknown]
  - Cleft lip and palate [Unknown]
  - Jaundice [Unknown]
  - Otitis media chronic [Unknown]
  - Emotional distress [Unknown]
  - Urinary incontinence [Unknown]
  - Conjunctivitis [Unknown]
  - Oral fungal infection [Unknown]
  - Mastoid disorder [Unknown]
  - Foreign body in ear [Unknown]
